FAERS Safety Report 4303891-8 (Version None)
Quarter: 2004Q1

REPORT INFORMATION
  Report Type: 
  Country: None (occurrence: None)
  Receive Date: 20040225
  Receipt Date: 20010730
  Transmission Date: 20041129
  Serious: Yes (Other)
  Sender: FDA-Public Use
  Company Number: WAES 01085502B1

PATIENT
  Age: -365 Day
  Sex: Male
  Weight: 3 kg

DRUGS (1)
  1. SINGULAIR [Suspect]
     Indication: ASTHMA
     Dates: end: 20010802

REACTIONS (4)
  - DRUG EXPOSURE DURING PREGNANCY [None]
  - MENINGITIS [None]
  - PREGNANCY [None]
  - VACUUM EXTRACTOR DELIVERY [None]
